FAERS Safety Report 16636479 (Version 1)
Quarter: 2019Q3

REPORT INFORMATION
  Report Type: Spontaneous
  Country: CH (occurrence: CH)
  Receive Date: 20190726
  Receipt Date: 20190726
  Transmission Date: 20191004
  Serious: Yes (Life-Threatening, Other)
  Sender: FDA-Public Use
  Company Number: CH-CHEPLA-C20191535

PATIENT
  Age: 65 Year
  Sex: Female
  Weight: 54 kg

DRUGS (13)
  1. RIXATHON [Suspect]
     Active Substance: RITUXIMAB
     Indication: DIFFUSE LARGE B-CELL LYMPHOMA
     Dosage: 3 DOSES ON 29.05.2019, 19.06. AND 11.07.2019 ; CYCLICAL
     Route: 041
     Dates: start: 20190529, end: 20190711
  2. CARBOPLATINE [Suspect]
     Active Substance: CARBOPLATIN
     Indication: DIFFUSE LARGE B-CELL LYMPHOMA
     Dosage: 3 DOSES ON 30.05.2019, 20.06. AND 12.07.2019 (ON DAY2 OF CYCLES) ; CYCLICAL
     Route: 041
     Dates: start: 20190530, end: 20190712
  3. MESNA. [Concomitant]
     Active Substance: MESNA
     Dates: start: 20190713
  4. ULTIBRO BREEZHALER [Concomitant]
     Active Substance: GLYCOPYRRONIUM\INDACATEROL
     Route: 055
  5. ETOPOPHOS [Suspect]
     Active Substance: ETOPOSIDE PHOSPHATE
     Indication: DIFFUSE LARGE B-CELL LYMPHOMA
     Dosage: 3 CYCLES  29.05.2019, 19.06. AND 11.07.2019 WITH 2 DOSES PER CYCLES ON DAY1 AND DAY2 ; CYCLICAL
     Route: 041
     Dates: start: 20190529, end: 20190712
  6. HOLOXAN [Suspect]
     Active Substance: IFOSFAMIDE
     Indication: DIFFUSE LARGE B-CELL LYMPHOMA
     Dosage: 75% OF THE DOSE
     Route: 041
     Dates: start: 20190712, end: 20190713
  7. HOLOXAN [Suspect]
     Active Substance: IFOSFAMIDE
     Indication: DIFFUSE LARGE B-CELL LYMPHOMA
     Dosage: 3 DOSES ON 30.05.2019, 20.06. AND 12.07.2019 ADMINISTERED ON DAY2-DAY3 OF CYCLES ; CYCLICAL
     Route: 041
     Dates: start: 20190530, end: 20190713
  8. MESNA. [Concomitant]
     Active Substance: MESNA
     Dosage: DAY3, 75% OF THE DOSE
     Dates: start: 20190713
  9. ZYLORIC [Concomitant]
     Active Substance: ALLOPURINOL
  10. CALCIMAGON-D3 STRONG 1000/800 [Concomitant]
  11. SOLU-MEDROL [Concomitant]
     Active Substance: METHYLPREDNISOLONE SODIUM SUCCINATE
  12. ETOPOPHOS [Suspect]
     Active Substance: ETOPOSIDE PHOSPHATE
     Indication: DIFFUSE LARGE B-CELL LYMPHOMA
     Dosage: 75% OF THE DOSE
     Route: 041
     Dates: start: 20190711, end: 20190712
  13. DAFALGAN [Concomitant]
     Active Substance: ACETAMINOPHEN

REACTIONS (5)
  - Hypoperfusion [Unknown]
  - Acute myocardial infarction [Not Recovered/Not Resolved]
  - Acute coronary syndrome [Not Recovered/Not Resolved]
  - Anaemia [Unknown]
  - Coronary artery occlusion [Unknown]

NARRATIVE: CASE EVENT DATE: 20190714
